FAERS Safety Report 5275543-1 (Version None)
Quarter: 2007Q1

REPORT INFORMATION
  Report Type: 
  Country: None (occurrence: None)
  Receive Date: 20061213
  Receipt Date: 20040430
  Transmission Date: 20070707
  Serious: Yes (Hospitalization)
  Sender: FDA-Public Use
  Company Number: 2004UW08892

PATIENT
  Age: 43 Year
  Sex: Female

DRUGS (2)
  1. SEROQUEL [Suspect]
     Indication: PERSONALITY DISORDER
     Dosage: 1000 MG PO
     Route: 048
     Dates: start: 20031101
  2. SEROQUEL [Suspect]
     Indication: SCHIZOAFFECTIVE DISORDER
     Dosage: 1000 MG PO
     Route: 048
     Dates: start: 20031101

REACTIONS (1)
  - DEEP VEIN THROMBOSIS [None]
